FAERS Safety Report 16841160 (Version 1)
Quarter: 2019Q3

REPORT INFORMATION
  Report Type: Spontaneous
  Country: US (occurrence: US)
  Receive Date: 20190923
  Receipt Date: 20190923
  Transmission Date: 20191005
  Serious: No
  Sender: FDA-Public Use
  Company Number: US-SA-2019SA258838

PATIENT
  Age: 83 Year
  Sex: Female

DRUGS (3)
  1. ZANTAC 75 [Suspect]
     Active Substance: RANITIDINE HYDROCHLORIDE
     Indication: OROPHARYNGEAL DISCOMFORT
  2. ZANTAC 75 [Suspect]
     Active Substance: RANITIDINE HYDROCHLORIDE
     Indication: DYSPEPSIA
     Dosage: UNK (75 OCCASIONALLY)
     Route: 065
  3. ZANTAC 75 [Suspect]
     Active Substance: RANITIDINE HYDROCHLORIDE
     Indication: COUGH

REACTIONS (2)
  - Off label use [Unknown]
  - Dyspepsia [Unknown]
